FAERS Safety Report 17197675 (Version 2)
Quarter: 2020Q1

REPORT INFORMATION
  Report Type: Spontaneous
  Country: BE (occurrence: BE)
  Receive Date: 20191224
  Receipt Date: 20200116
  Transmission Date: 20200409
  Serious: Yes (Death, Hospitalization)
  Sender: FDA-Public Use
  Company Number: BE-TEVA-2019-BE-1156739

PATIENT
  Age: 80 Year
  Sex: Male

DRUGS (4)
  1. VANCOMYCIN [Suspect]
     Active Substance: VANCOMYCIN
     Dosage: AS LOADING DOSE
     Route: 065
  2. AMOXICILLIN W/CLAVULANIC ACID [Suspect]
     Active Substance: AMOXICILLIN\CLAVULANIC ACID
     Indication: CHRONIC OBSTRUCTIVE PULMONARY DISEASE
     Route: 065
  3. LINEZOLID. [Suspect]
     Active Substance: LINEZOLID
     Route: 065
  4. VANCOMYCIN [Suspect]
     Active Substance: VANCOMYCIN
     Dosage: CONTINUOUS INFUSION OVER 24 H
     Route: 050

REACTIONS (2)
  - Pneumonia staphylococcal [Fatal]
  - Drug ineffective [Unknown]
